FAERS Safety Report 6015438-9 (Version None)
Quarter: 2008Q4

REPORT INFORMATION
  Report Type: 
  Country: None (occurrence: None)
  Receive Date: 20081222
  Receipt Date: 20081209
  Transmission Date: 20090506
  Serious: Yes (Other)
  Sender: FDA-Public Use
  Company Number: PHHY2008SE31140

PATIENT
  Sex: Female

DRUGS (1)
  1. LAMISIL [Suspect]
     Indication: ONYCHOMYCOSIS
     Dosage: 250 MG, 1X1
     Dates: start: 20081001, end: 20081113

REACTIONS (3)
  - AGEUSIA [None]
  - DEPRESSED MOOD [None]
  - POOR QUALITY SLEEP [None]
